FAERS Safety Report 17489371 (Version 1)
Quarter: 2020Q1

REPORT INFORMATION
  Report Type: Spontaneous
  Country: US (occurrence: US)
  Receive Date: 20200303
  Receipt Date: 20200303
  Transmission Date: 20200409
  Serious: Yes (Other)
  Sender: FDA-Public Use
  Company Number: US-ENDO PHARMACEUTICALS INC-2020-002080

PATIENT
  Age: 20 Year
  Sex: Male

DRUGS (1)
  1. XIAFLEX [Suspect]
     Active Substance: COLLAGENASE CLOSTRIDIUM HISTOLYTICUM
     Indication: PEYRONIE^S DISEASE
     Dosage: UNK UNKNOWN, FIRST INJECTION, UNKNOWN CYCLE
     Route: 065
     Dates: start: 20200225

REACTIONS (5)
  - Penile contusion [Unknown]
  - Penile swelling [Not Recovered/Not Resolved]
  - Syncope [Unknown]
  - Vomiting [Unknown]
  - Penile pain [Unknown]

NARRATIVE: CASE EVENT DATE: 20200225
